FAERS Safety Report 24625714 (Version 2)
Quarter: 2024Q4

REPORT INFORMATION
  Report Type: Spontaneous
  Country: JP (occurrence: JP)
  Receive Date: 20241115
  Receipt Date: 20241213
  Transmission Date: 20250114
  Serious: Yes (Death, Hospitalization, Disabling, Other)
  Sender: BRISTOL-MYERS SQUIBB COMPANY
  Company Number: JP-TAIHO-2024-009570

PATIENT
  Age: 78 Year
  Sex: Male
  Weight: 50.1 kg

DRUGS (8)
  1. ABRAXANE [Suspect]
     Active Substance: PACLITAXEL
     Indication: Metastatic gastric cancer
     Route: 041
     Dates: start: 20240823, end: 20240823
  2. ABRAXANE [Suspect]
     Active Substance: PACLITAXEL
     Route: 041
     Dates: start: 20240911, end: 20240911
  3. ABRAXANE [Suspect]
     Active Substance: PACLITAXEL
     Route: 041
     Dates: start: 20240925, end: 20240925
  4. CYRAMZA [Suspect]
     Active Substance: RAMUCIRUMAB
     Indication: Metastatic gastric cancer
     Route: 051
     Dates: start: 20240823, end: 20240823
  5. CYRAMZA [Suspect]
     Active Substance: RAMUCIRUMAB
     Dosage: 2 DOSING DAYS?DAILY DOSE: 360 MILLIGRAM(S)
     Route: 051
     Dates: start: 20240911, end: 20240925
  6. DEXAMETHASONE SODIUM PHOSPHATE [Concomitant]
     Active Substance: DEXAMETHASONE SODIUM PHOSPHATE
     Indication: Product used for unknown indication
     Dosage: 3.3 MG/2-3 WEEKS, 3 DOSING DAYS?DAILY DOSE: 3.3 MILLIGRAM(S)/SQ. METER
     Route: 041
     Dates: start: 20240823, end: 20240925
  7. PALONOSETRON HYDROCHLORIDE [Concomitant]
     Active Substance: PALONOSETRON HYDROCHLORIDE
     Indication: Product used for unknown indication
     Dosage: 0.75 MG/2-3 WEEKS, 3 DOSING DAYS?DAILY DOSE: 0.75 MILLIGRAM(S)
     Route: 041
     Dates: start: 20240823, end: 20240925
  8. POLARAMINE [Concomitant]
     Active Substance: DEXCHLORPHENIRAMINE MALEATE
     Indication: Product used for unknown indication
     Dosage: 5 MG/2-3 WEEKS, 3 DOSING DAYS?DAILY DOSE: 5 MILLIGRAM(S)
     Route: 041
     Dates: start: 20240823, end: 20240925

REACTIONS (4)
  - Febrile neutropenia [Recovered/Resolved]
  - Altered state of consciousness [Recovering/Resolving]
  - Pneumonia aspiration [Fatal]
  - Off label use [Unknown]

NARRATIVE: CASE EVENT DATE: 20240830
